FAERS Safety Report 8396211-3 (Version None)
Quarter: 2012Q2

REPORT INFORMATION
  Report Type: 
  Country: None (occurrence: None)
  Receive Date: 20120530
  Receipt Date: 20120524
  Transmission Date: 20120825
  Serious: Yes (Death)
  Sender: FDA-Public Use
  Company Number: JP-GLAXOSMITHKLINE-B0804204A

PATIENT
  Age: 36 Year
  Sex: Female

DRUGS (4)
  1. ROCEPHIN [Concomitant]
     Indication: GASTROENTERITIS BACTERIAL
     Dosage: 2G PER DAY
     Route: 042
     Dates: start: 20120316, end: 20120316
  2. EXACIN [Concomitant]
     Indication: GASTROENTERITIS BACTERIAL
     Route: 042
     Dates: start: 20120316, end: 20120316
  3. SOLDEM [Concomitant]
     Indication: GASTROENTERITIS BACTERIAL
     Dosage: 1000ML PER DAY
     Route: 042
     Dates: start: 20120316
  4. RELENZA [Suspect]
     Indication: PROPHYLAXIS
     Dosage: 10MG PER DAY
     Route: 055
     Dates: start: 20120316, end: 20120316

REACTIONS (1)
  - ANAPHYLACTIC SHOCK [None]
